FAERS Safety Report 5658023-0 (Version None)
Quarter: 2008Q1

REPORT INFORMATION
  Report Type: 
  Country: None (occurrence: None)
  Receive Date: 20080310
  Receipt Date: 20071015
  Transmission Date: 20080703
  Serious: Yes (Hospitalization, Other)
  Sender: FDA-Public Use
  Company Number: US-BAYER-200614403BCC

PATIENT
  Age: 66 Year
  Sex: Female
  Weight: 76 kg

DRUGS (10)
  1. ALEVE [Suspect]
     Indication: ARTHRALGIA
     Dosage: TOTAL DAILY DOSE: 440 MG  UNIT DOSE: 220 MG
     Route: 048
     Dates: start: 20061014
  2. EFFEXOR XR [Concomitant]
     Indication: HOT FLUSH
  3. CALCIUM WITH D [Concomitant]
  4. CELEBREX [Concomitant]
  5. OLAY MULTIVITAMIN [Concomitant]
  6. ZANTAC [Concomitant]
  7. NEXIUM [Concomitant]
  8. VITAMIN E [Concomitant]
  9. GENERIC 81 MG ASPIRIN [Concomitant]
  10. FOSAMAX [Concomitant]

REACTIONS (11)
  - DERMATITIS [None]
  - DRUG HYPERSENSITIVITY [None]
  - ORAL PAIN [None]
  - PHARYNGEAL OEDEMA [None]
  - PHARYNGOLARYNGEAL PAIN [None]
  - PRURITUS [None]
  - RASH GENERALISED [None]
  - RASH MACULO-PAPULAR [None]
  - SINUS CONGESTION [None]
  - SKIN LESION [None]
  - URTICARIA [None]
